FAERS Safety Report 25467652 (Version 1)
Quarter: 2025Q2

REPORT INFORMATION
  Report Type: Spontaneous
  Country: DE (occurrence: DE)
  Receive Date: 20250623
  Receipt Date: 20250623
  Transmission Date: 20250717
  Serious: Yes (Death, Other)
  Sender: STRIDES
  Company Number: DE-STRIDES ARCOLAB LIMITED-2025SP007545

PATIENT
  Age: 6 Year
  Sex: Male

DRUGS (2)
  1. ETOPOSIDE [Suspect]
     Active Substance: ETOPOSIDE
     Indication: Brain stem glioma
     Route: 048
     Dates: start: 20210216, end: 202201
  2. TROFOSFAMIDE [Suspect]
     Active Substance: TROFOSFAMIDE
     Indication: Brain stem glioma
     Route: 048
     Dates: start: 20210216, end: 202201

REACTIONS (2)
  - Neoplasm progression [Fatal]
  - Off label use [Unknown]

NARRATIVE: CASE EVENT DATE: 20210101
